FAERS Safety Report 25799811 (Version 1)
Quarter: 2025Q3

REPORT INFORMATION
  Report Type: Spontaneous
  Country: CH (occurrence: CH)
  Receive Date: 20250914
  Receipt Date: 20250914
  Transmission Date: 20251020
  Serious: Yes (Other)
  Sender: SERVIER
  Company Number: CH-SERVIER-S25012932

PATIENT

DRUGS (12)
  1. TIBSOVO [Suspect]
     Active Substance: IVOSIDENIB
     Indication: Acute myeloid leukaemia
     Dosage: 500 MG, QD, DAY 1-28, CYCLE 1
     Route: 048
     Dates: start: 20250402, end: 20250429
  2. TIBSOVO [Suspect]
     Active Substance: IVOSIDENIB
     Dosage: 500 MG, QD, DAY 1-28, CYCLE 2
     Route: 048
     Dates: start: 20250505, end: 20250601
  3. TIBSOVO [Suspect]
     Active Substance: IVOSIDENIB
     Dosage: 500 MG, QD, DAY 1-28, CYCLE 3
     Route: 048
     Dates: start: 20250616, end: 20250713
  4. TIBSOVO [Suspect]
     Active Substance: IVOSIDENIB
     Dosage: 500 MG, QD, DAY 1-28, CYCLE 4
     Route: 048
     Dates: start: 20250714, end: 20250810
  5. TIBSOVO [Suspect]
     Active Substance: IVOSIDENIB
     Dosage: 500 MG, QD, DAY 1-28, CYCLE 5
     Route: 048
     Dates: start: 20250811
  6. AZACITIDINE [Suspect]
     Active Substance: AZACITIDINE
     Indication: Acute myeloid leukaemia
     Dosage: 250 MG/M2, QD, DAY 1-5, CYCLE 1
     Route: 058
     Dates: start: 20250402, end: 20250406
  7. AZACITIDINE [Suspect]
     Active Substance: AZACITIDINE
     Dosage: 210 MG/M2, QD, DAY 1-5, CYCLE 2
     Route: 058
     Dates: start: 20250505, end: 20250509
  8. AZACITIDINE [Suspect]
     Active Substance: AZACITIDINE
     Dosage: 212 MG/M2, QD, DAY 1-5, CYCLE 3
     Route: 058
     Dates: start: 20250616, end: 20250620
  9. AZACITIDINE [Suspect]
     Active Substance: AZACITIDINE
     Dosage: 212 MG/M2, QD, DAY 1-5, CYCLE 4
     Route: 058
     Dates: start: 20250714, end: 20250718
  10. AZACITIDINE [Suspect]
     Active Substance: AZACITIDINE
     Dosage: 212 MG/M2, QD, DAY 1-5, CYCLE 5
     Route: 058
     Dates: start: 20250811
  11. CEFEPIME HYDROCHLORIDE [Suspect]
     Active Substance: CEFEPIME HYDROCHLORIDE
     Indication: Febrile neutropenia
     Route: 065
     Dates: start: 20250404, end: 20250413
  12. ISAVUCONAZOLE [Suspect]
     Active Substance: ISAVUCONAZOLE
     Indication: Febrile neutropenia
     Route: 065
     Dates: start: 20250408, end: 20250611

REACTIONS (7)
  - Febrile neutropenia [Unknown]
  - Pneumonia fungal [Unknown]
  - Dysgeusia [Unknown]
  - Alopecia [Unknown]
  - Electrocardiogram QT prolonged [Unknown]
  - Pancytopenia [Unknown]
  - Neutropenia [Unknown]
